FAERS Safety Report 5638990-1 (Version None)
Quarter: 2008Q1

REPORT INFORMATION
  Report Type: 
  Country: None (occurrence: None)
  Receive Date: 20080222
  Receipt Date: 20080214
  Transmission Date: 20080703
  Serious: Yes (Hospitalization)
  Sender: FDA-Public Use
  Company Number: 2008SP002510

PATIENT
  Age: 64 Year
  Sex: Male

DRUGS (6)
  1. TEMODAL [Suspect]
     Indication: GLIOBLASTOMA
     Dosage: 140 MG; QD; PO, 300 MG; QD; PO, 300 MG; QD; PO
     Route: 048
     Dates: start: 20070920, end: 20071105
  2. TEMODAL [Suspect]
     Indication: GLIOBLASTOMA
     Dosage: 140 MG; QD; PO, 300 MG; QD; PO, 300 MG; QD; PO
     Route: 048
     Dates: start: 20071214, end: 20071218
  3. TEMODAL [Suspect]
     Indication: GLIOBLASTOMA
     Dosage: 140 MG; QD; PO, 300 MG; QD; PO, 300 MG; QD; PO
     Route: 048
     Dates: start: 20080117, end: 20080117
  4. BISOPROLOL FUMARATE [Concomitant]
  5. PANTOZOL                /01263202/ [Concomitant]
  6. OMEPRAZOL             /00661201/ [Concomitant]

REACTIONS (2)
  - PNEUMONITIS [None]
  - PYREXIA [None]
